FAERS Safety Report 12898065 (Version 1)
Quarter: 2016Q4

REPORT INFORMATION
  Report Type: Spontaneous
  Country: FR (occurrence: FR)
  Receive Date: 20161031
  Receipt Date: 20161031
  Transmission Date: 20170207
  Serious: Yes (Other)
  Sender: FDA-Public Use
  Company Number: FR-TEVA-616408ISR

PATIENT
  Age: 50 Year
  Sex: Male
  Weight: 76 kg

DRUGS (1)
  1. CEFTRIAXONE RATIOPHARM 1G/3.5 ML [Suspect]
     Active Substance: CEFTRIAXONE
     Indication: LYME DISEASE
     Dosage: 2 GRAM DAILY; PRESCRIBED FOR 21 DAYS
     Route: 030
     Dates: start: 20150801, end: 20150825

REACTIONS (12)
  - Dizziness [Recovered/Resolved]
  - Haemoglobin increased [Not Recovered/Not Resolved]
  - Hypersensitivity [Recovered/Resolved]
  - Drug-induced liver injury [Recovered/Resolved]
  - Gamma-glutamyltransferase increased [Not Recovered/Not Resolved]
  - Tinnitus [Unknown]
  - Urticaria [Recovered/Resolved]
  - Diarrhoea [Recovered/Resolved]
  - Transaminases increased [Not Recovered/Not Resolved]
  - Asthenia [Unknown]
  - Oedema [Recovered/Resolved]
  - Nausea [Recovered/Resolved]

NARRATIVE: CASE EVENT DATE: 2015
